FAERS Safety Report 14321386 (Version 2)
Quarter: 2018Q1

REPORT INFORMATION
  Report Type: Spontaneous
  Country: US (occurrence: US)
  Receive Date: 20171223
  Receipt Date: 20180117
  Transmission Date: 20180509
  Serious: No
  Sender: FDA-Public Use
  Company Number: US-GLAXOSMITHKLINE-US2017196843

PATIENT
  Sex: Female

DRUGS (3)
  1. VENTOLIN HFA [Suspect]
     Active Substance: ALBUTEROL SULFATE
     Indication: ASTHMA
     Dosage: 2 PUFF(S), PRN
  2. XELJANZ [Concomitant]
     Active Substance: TOFACITINIB CITRATE
  3. BIOTIN [Concomitant]
     Active Substance: BIOTIN

REACTIONS (2)
  - Synovial cyst [Recovered/Resolved]
  - Joint swelling [Unknown]
